FAERS Safety Report 7926278-5 (Version None)
Quarter: 2011Q4

REPORT INFORMATION
  Report Type: 
  Country: None (occurrence: None)
  Receive Date: 20111118
  Receipt Date: 20111109
  Transmission Date: 20120403
  Serious: Yes (Hospitalization, Other)
  Sender: FDA-Public Use
  Company Number: US-BIOGENIDEC-2011BI042980

PATIENT
  Age: 66 Year
  Sex: Male

DRUGS (3)
  1. AVONEX [Suspect]
     Route: 030
  2. AVONEX [Suspect]
     Indication: MULTIPLE SCLEROSIS
     Route: 030
     Dates: start: 20020607
  3. AVONEX [Suspect]
     Route: 030

REACTIONS (3)
  - APPARENT DEATH [None]
  - HEADACHE [None]
  - ABDOMINAL PAIN UPPER [None]
